FAERS Safety Report 4611216-3 (Version None)
Quarter: 2005Q1

REPORT INFORMATION
  Report Type: 
  Country: None (occurrence: None)
  Receive Date: 20050317
  Receipt Date: 20050304
  Transmission Date: 20050727
  Serious: Yes (Congenital Anomaly, Other)
  Sender: FDA-Public Use
  Company Number: PHBS2005US03639

PATIENT
  Sex: Male

DRUGS (2)
  1. CARBAMAZEPINE [Suspect]
     Indication: CONVULSION
     Route: 064
  2. VALPROIC ACID [Suspect]
     Indication: CONVULSION
     Route: 064

REACTIONS (24)
  - ABNORMAL BEHAVIOUR [None]
  - AGGRESSION [None]
  - ANKYLOGLOSSIA CONGENITAL [None]
  - ASTHMA [None]
  - AUTISM [None]
  - COMMUNICATION DISORDER [None]
  - CONDUCTIVE DEAFNESS [None]
  - CONGENITAL FACIAL NERVE HYPOPLASIA [None]
  - CONGENITAL NOSE MALFORMATION [None]
  - DRUG EXPOSURE DURING PREGNANCY [None]
  - EAR MALFORMATION [None]
  - ECHOLALIA [None]
  - FEEDING DISORDER [None]
  - FOETAL VALPROATE SYNDROME [None]
  - GASTROOESOPHAGEAL REFLUX DISEASE [None]
  - HEAD BANGING [None]
  - HYPOSPADIAS [None]
  - LIP DISORDER [None]
  - MYRINGOTOMY [None]
  - NIPPLE DISORDER [None]
  - OTITIS MEDIA CHRONIC [None]
  - SKULL MALFORMATION [None]
  - TESTICULAR TORSION [None]
  - WEIGHT GAIN POOR [None]
